FAERS Safety Report 25495124 (Version 1)
Quarter: 2025Q2

REPORT INFORMATION
  Report Type: Spontaneous
  Country: US (occurrence: US)
  Receive Date: 20250630
  Receipt Date: 20250630
  Transmission Date: 20250717
  Serious: No
  Sender: GUERBET
  Company Number: US-GUERBET / LLC-US-20250080

PATIENT
  Age: 64 Year
  Sex: Male
  Weight: 93 kg

DRUGS (1)
  1. DOTAREM [Suspect]
     Active Substance: GADOTERATE MEGLUMINE
     Indication: Magnetic resonance imaging prostate
     Route: 042
     Dates: start: 20250409, end: 20250409

REACTIONS (2)
  - Urticaria [Recovered/Resolved]
  - Off label use [Recovered/Resolved]

NARRATIVE: CASE EVENT DATE: 20250409
